FAERS Safety Report 10524354 (Version 1)
Quarter: 2014Q4

REPORT INFORMATION
  Report Type: Spontaneous
  Country: US (occurrence: None)
  Receive Date: 20141015
  Receipt Date: 20141015
  Transmission Date: 20150528
  Serious: Yes (Other)
  Sender: FDA-Public Use
  Company Number: 2014VER00232

PATIENT
  Age: 14 Year
  Sex: Male
  Weight: 54.7 kg

DRUGS (2)
  1. MYORISAN [Suspect]
     Active Substance: ISOTRETINOIN
     Indication: ACNE
     Dosage: DAY
     Route: 048
     Dates: start: 201312, end: 201404
  2. MYORISAN [Suspect]
     Active Substance: ISOTRETINOIN
     Indication: ACNE
     Dosage: DAY
     Route: 048
     Dates: start: 201312, end: 201401

REACTIONS (4)
  - Back pain [None]
  - Body height below normal [None]
  - Epiphyses premature fusion [None]
  - Myalgia [None]

NARRATIVE: CASE EVENT DATE: 201312
